FAERS Safety Report 8840900 (Version 1)
Quarter: 2012Q4

REPORT INFORMATION
  Report Type: 
  Country: JP (occurrence: JP)
  Receive Date: 20121015
  Receipt Date: 20121015
  Transmission Date: 20130627
  Serious: Yes (Other)
  Sender: FDA-Public Use
  Company Number: JP-SANOFI-AVENTIS-2012SA073543

PATIENT
  Age: 65 Year
  Sex: Male

DRUGS (3)
  1. ALLEGRA [Suspect]
     Indication: RHINITIS
     Route: 048
     Dates: start: 20120914, end: 20120918
  2. SOLANAX [Suspect]
     Indication: PSYCHIATRIC DISORDER NOS
     Route: 048
     Dates: start: 20120622
  3. URSO [Concomitant]
     Indication: LIVER DISORDER
     Route: 048
     Dates: start: 20120720, end: 20120918

REACTIONS (1)
  - Sopor [Recovered/Resolved]
